FAERS Safety Report 5657036-2 (Version None)
Quarter: 2008Q1

REPORT INFORMATION
  Report Type: 
  Country: None (occurrence: None)
  Receive Date: 20080310
  Receipt Date: 20080229
  Transmission Date: 20080703
  Serious: Yes (Other)
  Sender: FDA-Public Use
  Company Number: US-ROCHE-550378

PATIENT
  Age: 62 Year
  Sex: Female

DRUGS (23)
  1. BONIVA [Suspect]
     Indication: DRUG USE FOR UNKNOWN INDICATION
     Dosage: OFF BONIVA FOR 3-4 MONTHS
     Route: 065
     Dates: start: 20070401, end: 20071001
  2. VITAMIN B-12 [Concomitant]
     Dosage: REPORTED AS B12
  3. MULTIVITAMIN NOS [Concomitant]
  4. CALCIUM [Concomitant]
  5. ASPIRIN [Concomitant]
  6. FISH OIL [Concomitant]
  7. LASIX [Concomitant]
  8. POTASSIUM CHLORIDE [Concomitant]
  9. ZOLOFT [Concomitant]
  10. PRIMIDONE [Concomitant]
     Dosage: REPORTED AS 'PRIMODONE'
  11. PEPCID [Concomitant]
  12. LOTREL [Concomitant]
     Dosage: REPORTED AS 'LOTREL 5/10'
  13. HYDROCHLOROTHIAZIDE [Concomitant]
  14. ZANAFLEX [Concomitant]
     Dosage: DRUG REPORTED AS 'ZENAFLEX'
  15. MIRALAX [Concomitant]
  16. PREMARIN [Concomitant]
  17. IBUPROFEN [Concomitant]
  18. NORCO [Concomitant]
  19. TUMS [Concomitant]
  20. 1 CONCOMITANT UNSPECIFIED DRUG [Concomitant]
     Dosage: REPORTED AS 'FIBER PILLS'
  21. 1 CONCOMITANT UNSPECIFIED DRUG [Concomitant]
     Dosage: REPORTED AS 'CRANBERRY PILLS'
  22. 1 CONCOMITANT UNSPECIFIED DRUG [Concomitant]
     Dosage: ALSO REPORTED AS 'HYDROCHLORIDE/ACETAMINOPHEN'.
  23. 1 CONCOMITANT UNSPECIFIED DRUG [Concomitant]
     Dosage: REPORTED AS 'CHOLESTEROL MEDICATION'

REACTIONS (2)
  - PAIN IN JAW [None]
  - TOOTH FRACTURE [None]
